FAERS Safety Report 4828345-1 (Version None)
Quarter: 2005Q4

REPORT INFORMATION
  Report Type: 
  Country: None (occurrence: None)
  Receive Date: 20051115
  Receipt Date: 20050929
  Transmission Date: 20060501
  Serious: Yes (Death, Life-Threatening)
  Sender: FDA-Public Use
  Company Number: JP-SANOFI-SYNTHELABO-F01200502005

PATIENT
  Sex: Male
  Weight: 46 kg

DRUGS (15)
  1. OXALIPLATIN [Suspect]
     Indication: RECTAL CANCER
     Dosage: 120 MG
     Route: 042
     Dates: start: 20050824, end: 20050824
  2. OXALIPLATIN [Suspect]
     Dosage: 100 MG
     Route: 042
     Dates: start: 20050907, end: 20050907
  3. FLUOROURACIL [Suspect]
     Indication: RECTAL CANCER
     Dosage: 550 MG
     Route: 042
     Dates: start: 20050824, end: 20050824
  4. FLUOROURACIL [Suspect]
     Dosage: 850 MG
     Route: 042
     Dates: start: 20050824, end: 20050825
  5. FLUOROURACIL [Suspect]
     Dosage: 500 MG
     Route: 042
     Dates: start: 20050907, end: 20050907
  6. FLUOROURACIL [Suspect]
     Dosage: 750 MG
     Route: 042
     Dates: start: 20050907, end: 20050908
  7. CALCIUM LEVOFOLINATE [Suspect]
     Indication: RECTAL CANCER
     Dosage: 140 MG
     Route: 042
     Dates: start: 20050824, end: 20050825
  8. CALCIUM LEVOFOLINATE [Suspect]
     Dosage: 125 MG
     Route: 042
     Dates: start: 20050907, end: 20050908
  9. FENTANYL [Concomitant]
  10. MORPHINE [Concomitant]
     Route: 054
  11. DOBUTAMINE HCL [Concomitant]
     Route: 042
     Dates: start: 20050913, end: 20050913
  12. DOPAMINE HCL [Concomitant]
     Dates: start: 20050913, end: 20050913
  13. NALOXONE HCL [Concomitant]
     Route: 042
     Dates: start: 20050913, end: 20050913
  14. EPINEPHRINE [Concomitant]
     Route: 042
     Dates: start: 20050913, end: 20050913
  15. METOCLOPRAMIDE [Concomitant]
     Route: 042
     Dates: start: 20050828, end: 20050912

REACTIONS (4)
  - ABDOMINAL PAIN [None]
  - ENTEROCOLITIS HAEMORRHAGIC [None]
  - GASTROINTESTINAL HAEMORRHAGE [None]
  - SEPTIC SHOCK [None]
